FAERS Safety Report 5115332-1 (Version None)
Quarter: 2006Q3

REPORT INFORMATION
  Report Type: 
  Country: None (occurrence: None)
  Receive Date: 20060922
  Receipt Date: 20060907
  Transmission Date: 20061208
  Serious: Yes (Hospitalization)
  Sender: FDA-Public Use
  Company Number: ST-2006-009254

PATIENT
  Age: 46 Year
  Sex: Male

DRUGS (6)
  1. OLMESARTAN MEDOXOMIL [Suspect]
     Indication: HYPERTENSION
     Dosage: 20 MG QD PO
     Route: 048
     Dates: start: 20060707, end: 20060708
  2. SIGMART [Suspect]
     Indication: CORONARY ARTERY DISEASE
     Dates: start: 20060709
  3. FAMOTIDINE [Suspect]
     Indication: PEPTIC ULCER
     Dosage: 20 MG PO
     Route: 048
     Dates: start: 20060709, end: 20060719
  4. FAMOTIDINE [Suspect]
     Indication: PROPHYLAXIS
     Dosage: 20 MG PO
     Route: 048
     Dates: start: 20060709, end: 20060719
  5. PANALDINE [Suspect]
     Indication: PLATELET AGGREGATION INHIBITION
     Dates: start: 20060708, end: 20060708
  6. LOCHOL [Concomitant]

REACTIONS (4)
  - ALANINE AMINOTRANSFERASE INCREASED [None]
  - ASPARTATE AMINOTRANSFERASE INCREASED [None]
  - HEPATIC STEATOSIS [None]
  - LIVER DISORDER [None]
